FAERS Safety Report 4626642-6 (Version None)
Quarter: 2005Q1

REPORT INFORMATION
  Report Type: 
  Country: None (occurrence: None)
  Receive Date: 20050330
  Receipt Date: 20050321
  Transmission Date: 20050727
  Serious: Yes (Death, Hospitalization)
  Sender: FDA-Public Use
  Company Number: HQWYE331924MAR05

PATIENT
  Age: 37 Year
  Sex: Male

DRUGS (7)
  1. EFFEXOR XR [Suspect]
     Indication: DEPRESSION
     Dosage: 187.5  MG 1X PER 1 DAY, ORAL
     Route: 048
     Dates: start: 20041101
  2. LAMICTAL [Suspect]
     Dates: start: 20041101
  3. SEROQUEL [Suspect]
     Dates: start: 20041101
  4. TEGRETOL [Suspect]
     Dates: start: 20041101
  5. VISTARIL [Suspect]
     Dates: start: 20041101
  6. XANAX XR [Suspect]
     Dates: start: 20041101, end: 20041101
  7. XANAX XR [Suspect]
     Dates: start: 20041101

REACTIONS (6)
  - COMPLETED SUICIDE [None]
  - DRUG WITHDRAWAL SYNDROME [None]
  - MEDICATION ERROR [None]
  - PANIC ATTACK [None]
  - TREATMENT NONCOMPLIANCE [None]
  - UNEVALUABLE EVENT [None]
